FAERS Safety Report 8230470-2 (Version None)
Quarter: 2012Q1

REPORT INFORMATION
  Report Type: 
  Country: None (occurrence: None)
  Receive Date: 20120323
  Receipt Date: 20120315
  Transmission Date: 20120608
  Serious: Yes (Hospitalization)
  Sender: FDA-Public Use
  Company Number: US-BAYER-2011-122067

PATIENT
  Age: 21 Year
  Sex: Female
  Weight: 104.31 kg

DRUGS (5)
  1. ADDERALL 5 [Concomitant]
     Dosage: UNK
     Dates: start: 20040101, end: 20100101
  2. PROZAC [Concomitant]
     Dosage: UNK
     Dates: start: 20040101, end: 20100101
  3. CLARITIN [Concomitant]
     Dosage: UNK
     Dates: start: 20040101, end: 20100101
  4. NSAID'S [Concomitant]
     Dosage: UNK UNK, PRN
  5. YAZ [Suspect]
     Indication: CONTRACEPTION
     Dosage: UNK
     Dates: start: 20080901, end: 20091101

REACTIONS (13)
  - PROCEDURAL PAIN [None]
  - PAIN [None]
  - ABDOMINAL PAIN UPPER [None]
  - CHOLELITHIASIS [None]
  - FEAR [None]
  - DYSPEPSIA [None]
  - EMOTIONAL DISTRESS [None]
  - ANHEDONIA [None]
  - ANXIETY [None]
  - CHOLECYSTITIS CHRONIC [None]
  - PSYCHOLOGICAL TRAUMA [None]
  - NAUSEA [None]
  - VOMITING [None]
